FAERS Safety Report 18963863 (Version 3)
Quarter: 2021Q2

REPORT INFORMATION
  Report Type: Spontaneous
  Country: NZ (occurrence: NZ)
  Receive Date: 20210303
  Receipt Date: 20210405
  Transmission Date: 20210717
  Serious: Yes (Hospitalization, Other)
  Sender: FDA-Public Use
  Company Number: NZ-ORGANON-2101NZL008927

PATIENT
  Age: 71 Year
  Sex: Male
  Weight: 76.19 kg

DRUGS (9)
  1. SINEMET CR [Suspect]
     Active Substance: CARBIDOPA\LEVODOPA
     Indication: PARKINSON^S DISEASE
     Dosage: TAB FOUR TIMES DAILY
     Route: 048
     Dates: start: 2001, end: 2018
  2. LEVOTHYROXINE. [Concomitant]
     Active Substance: LEVOTHYROXINE
     Dosage: 2 TABS DAILY
     Dates: start: 1996
  3. MULTIVITAMINS [VITAMINS NOS] [Concomitant]
     Active Substance: VITAMINS
     Dosage: UNK
  4. LEVOTHYROXINE. [Concomitant]
     Active Substance: LEVOTHYROXINE
     Dosage: 1 TAB FRIDAY
     Route: 048
     Dates: start: 1996
  5. SINEMET CR [Concomitant]
     Active Substance: CARBIDOPA\LEVODOPA
     Indication: PARKINSON^S DISEASE
     Dosage: 1 TAB THREE TIMES DAILY
     Dates: end: 2018
  6. CARBIDOPA AND LEVODOPA [Concomitant]
     Active Substance: CARBIDOPA\LEVODOPA
     Indication: PARKINSON^S DISEASE
     Dosage: 1 DOSAGE FORM
     Route: 048
  7. KINSON [Concomitant]
     Active Substance: CARBIDOPA\LEVODOPA
     Dosage: 1 TAB THREE TIMES DAILY
     Route: 048
  8. RAMIPEX [Concomitant]
     Dosage: 1 TAB THREE TIMES DAILY
     Route: 048
     Dates: start: 2016
  9. SYMMETREL [Concomitant]
     Active Substance: AMANTADINE HYDROCHLORIDE
     Dosage: 1 CAPSULE TWICE A DAY
     Route: 048
     Dates: start: 1997

REACTIONS (12)
  - Tremor [Recovering/Resolving]
  - Mobility decreased [Recovering/Resolving]
  - Blood pressure increased [Recovering/Resolving]
  - Malaise [Recovering/Resolving]
  - Coordination abnormal [Recovering/Resolving]
  - Feeling abnormal [Recovering/Resolving]
  - Asthenia [Recovering/Resolving]
  - Speech disorder [Recovering/Resolving]
  - Loss of consciousness [Unknown]
  - Malaise [Recovering/Resolving]
  - Syncope [Recovering/Resolving]
  - Product availability issue [Unknown]

NARRATIVE: CASE EVENT DATE: 2018
